FAERS Safety Report 9452638 (Version 3)
Quarter: 2014Q1

REPORT INFORMATION
  Report Type: Spontaneous
  Country: US (occurrence: US)
  Receive Date: 20130812
  Receipt Date: 20140310
  Transmission Date: 20141002
  Serious: Yes (Other)
  Sender: FDA-Public Use
  Company Number: US-BAYER-2013-096767

PATIENT
  Age: 23 Year
  Sex: Female
  Weight: 81.63 kg

DRUGS (4)
  1. MIRENA [Suspect]
     Indication: CONTRACEPTION
     Dosage: 20 MCG/24HR, CONT
     Route: 015
     Dates: start: 20070620, end: 20100803
  2. METRONIDAZOLE [Concomitant]
     Dosage: 2 G, UNK
     Route: 048
     Dates: start: 20100605
  3. BACTRIM [Concomitant]
     Indication: URINARY TRACT INFECTION
     Dosage: [TWICE PER DAY FOR] 7 DAYS
     Route: 048
     Dates: start: 20100605
  4. CEFTRIAZONA [Concomitant]
     Dosage: 125 MG, UNK
     Route: 030
     Dates: start: 20100605

REACTIONS (7)
  - Embedded device [None]
  - Injury [None]
  - Abdominal pain upper [None]
  - Micturition urgency [None]
  - Device difficult to use [None]
  - Pain [None]
  - Stress [None]
